FAERS Safety Report 8390005-0 (Version None)
Quarter: 2012Q2

REPORT INFORMATION
  Report Type: 
  Country: None (occurrence: None)
  Receive Date: 20120529
  Receipt Date: 20120525
  Transmission Date: 20120825
  Serious: No
  Sender: FDA-Public Use
  Company Number: US-PFIZER INC-2012127142

PATIENT
  Sex: Female
  Weight: 63.492 kg

DRUGS (3)
  1. VENLAFAXINE HCL [Suspect]
     Indication: ANXIETY
     Dosage: 150 MG, DAILY
     Route: 048
  2. VENLAFAXINE HCL [Suspect]
     Indication: DEPRESSION
  3. HYDROCODONE [Concomitant]
     Indication: SLEEP DISORDER
     Dosage: UNK, DAILY

REACTIONS (2)
  - ORAL CANDIDIASIS [None]
  - DYSPHAGIA [None]
